FAERS Safety Report 24525112 (Version 1)
Quarter: 2024Q4

REPORT INFORMATION
  Report Type: Spontaneous
  Country: GB (occurrence: GB)
  Receive Date: 20241019
  Receipt Date: 20241019
  Transmission Date: 20250114
  Serious: Yes (Other)
  Sender: CELLTRION
  Company Number: GB-BAXTER-2024BAX025270

PATIENT

DRUGS (3)
  1. INFLIXIMAB [Suspect]
     Active Substance: INFLIXIMAB
     Indication: Crohn^s disease
     Dosage: 520 MG, 8 WEEKLY (REMSIMA 1MG); ADDITIONAL INFORMATION ON DRUG (FREE TEXT): DOSAGE1: EXPDT=30-APR-20
     Route: 042
  2. SODIUM CHLORIDE [Suspect]
     Active Substance: SODIUM CHLORIDE
     Indication: Medication dilution
     Dosage: UNK; ADDITIONAL INFORMATION ON DRUG (FREE TEXT): DOSAGE1: EXPDT=31-JUL-2026)
     Route: 042
  3. WATER FOR INJECTION [Suspect]
     Active Substance: WATER
     Indication: Medication dilution
     Dosage: UNK; ADDITIONAL INFORMATION ON DRUG (FREE TEXT): DOSAGE1: EXPDT=30-APR-2027
     Route: 042

REACTIONS (3)
  - Haematochezia [Unknown]
  - Insomnia [Unknown]
  - Dizziness [Unknown]

NARRATIVE: CASE EVENT DATE: 20240901
